FAERS Safety Report 21385281 (Version 2)
Quarter: 2022Q4

REPORT INFORMATION
  Report Type: Report from Study
  Country: US (occurrence: US)
  Receive Date: 20220928
  Receipt Date: 20221222
  Transmission Date: 20230112
  Serious: Yes (Other)
  Sender: FDA-Public Use
  Company Number: US-ABBVIE-4130093

PATIENT
  Age: 67 Year
  Sex: Male
  Weight: 102.05 kg

DRUGS (5)
  1. SKYRIZI [Suspect]
     Active Substance: RISANKIZUMAB-RZAA
     Indication: Psoriasis
     Route: 058
     Dates: end: 2021
  2. Covid 19 Vaccination [Concomitant]
     Indication: Immunisation
     Dosage: MODERNA
     Route: 030
     Dates: start: 20210310, end: 20210310
  3. Covid 19 Vaccination [Concomitant]
     Indication: Immunisation
     Dosage: MODERNA
     Route: 030
     Dates: start: 20210407, end: 20210407
  4. MODERNA COVID-19 VACCINE [Concomitant]
     Active Substance: ELASOMERAN
     Indication: COVID-19 immunisation
     Dosage: FIRST DOSE
     Route: 030
     Dates: start: 20210310, end: 20210310
  5. MODERNA COVID-19 VACCINE [Concomitant]
     Active Substance: ELASOMERAN
     Indication: COVID-19 immunisation
     Dosage: SECOND DOSE
     Route: 030
     Dates: start: 20210407, end: 20210407

REACTIONS (1)
  - Prostate cancer [Unknown]
